FAERS Safety Report 15931684 (Version 1)
Quarter: 2019Q1

REPORT INFORMATION
  Report Type: Report from Study
  Country: IT (occurrence: IT)
  Receive Date: 20190207
  Receipt Date: 20190207
  Transmission Date: 20190417
  Serious: Yes (Other)
  Sender: FDA-Public Use
  Company Number: IT-TEVA-2019-IT-1007958

PATIENT
  Age: 89 Year
  Sex: Male

DRUGS (10)
  1. QUETIAPINA AUROBINDO 25 MG COMPRESSE RIVESTITE CON FILM [Concomitant]
     Active Substance: QUETIAPINE FUMARATE
     Route: 048
     Dates: start: 20180804
  2. DIAZEPAM SANDOZ  5 MG/ ML GOCCE ORALI, SOLUZIONE [Concomitant]
     Route: 048
     Dates: start: 20181215
  3. CALCITRIOLO DOC GENERICI 0,25 MICROGRAMMI CAPSULE MOLLI [Concomitant]
     Route: 048
     Dates: start: 20180607
  4. CITALOPRAM ABC 40 MG/ML GOCCE ORALI, SOLUZIONE [Concomitant]
     Route: 048
     Dates: start: 20180813
  5. BISOPROLOLO TEVA 1,25 MG COMPRESSE [Concomitant]
     Active Substance: BISOPROLOL
     Route: 048
     Dates: start: 20180607
  6. LIPOSOM FORTE 28 MG/2 ML SOLUZIONE INIETTABILE [Concomitant]
     Dates: start: 20180618
  7. REPAGLINIDE ACTAVIS [Suspect]
     Active Substance: REPAGLINIDE
     Indication: DIABETES MELLITUS
     Dosage: .5 MILLIGRAM DAILY;
     Route: 048
     Dates: start: 20180607
  8. RANITIDINE. [Concomitant]
     Active Substance: RANITIDINE
     Route: 048
     Dates: start: 20180919
  9. CLARITROMICINA DOC GENERICI 500 MG COMPRESSE RIVESTITE CON FILM [Concomitant]
     Indication: BRONCHITIS
     Route: 048
     Dates: start: 20190109, end: 20190115
  10. DOBETIN 1000 MICROGRAMMI/ML SOLUZIONE INIETTABILE [Concomitant]
     Dates: start: 20180618

REACTIONS (2)
  - Hypoglycaemic coma [Recovering/Resolving]
  - Syncope [Recovering/Resolving]

NARRATIVE: CASE EVENT DATE: 20190112
